FAERS Safety Report 23356208 (Version 1)
Quarter: 2024Q1

REPORT INFORMATION
  Report Type: Spontaneous
  Country: US (occurrence: US)
  Receive Date: 20240102
  Receipt Date: 20240102
  Transmission Date: 20240409
  Serious: No
  Sender: FDA-Public Use
  Company Number: US-AJANTA-2023AJA00123

PATIENT
  Sex: Male

DRUGS (1)
  1. TADALAFIL [Suspect]
     Active Substance: TADALAFIL
     Indication: Product used for unknown indication

REACTIONS (6)
  - Drug ineffective [Unknown]
  - Headache [Unknown]
  - Back pain [Unknown]
  - Tinnitus [Unknown]
  - Rash [Unknown]
  - Product substitution issue [Unknown]
